FAERS Safety Report 8662142 (Version 2)
Quarter: 2012Q4

REPORT INFORMATION
  Report Type: 
  Country: US (occurrence: US)
  Receive Date: 20120712
  Receipt Date: 20120920
  Transmission Date: 20130627
  Serious: Yes (Hospitalization, Other)
  Sender: FDA-Public Use
  Company Number: PHEH2012US012690

PATIENT
  Age: 48 None
  Sex: Female
  Weight: 63.49 kg

DRUGS (1)
  1. GILENYA [Suspect]
     Indication: MULTIPLE SCLEROSIS
     Dosage: 0.5 mg, QD
     Route: 048
     Dates: start: 201205, end: 201205

REACTIONS (3)
  - Nausea [Recovered/Resolved]
  - Vomiting [Recovered/Resolved]
  - Electrocardiogram abnormal [Unknown]
